FAERS Safety Report 9640556 (Version 1)
Quarter: 2013Q4

REPORT INFORMATION
  Report Type: Spontaneous
  Country: US (occurrence: None)
  Receive Date: 20131022
  Receipt Date: 20131022
  Transmission Date: 20140711
  Serious: Yes (Disabling)
  Sender: FDA-Public Use
  Company Number: None

PATIENT
  Age: 43 Year
  Sex: Female
  Weight: 54.43 kg

DRUGS (1)
  1. LUGOL^S SOLUTION [Suspect]
     Indication: TRI-IODOTHYRONINE DECREASED
     Dosage: 1-2 DROPS ONCE DAILY TAKEN BY MOUTH
     Route: 048
     Dates: start: 20130806, end: 20130811

REACTIONS (17)
  - Abdominal pain [None]
  - Diarrhoea [None]
  - Dyspnoea [None]
  - Palpitations [None]
  - Asthenia [None]
  - Ataxia [None]
  - Ascites [None]
  - Pain in extremity [None]
  - Arthralgia [None]
  - Musculoskeletal chest pain [None]
  - Nausea [None]
  - Breast pain [None]
  - Fatigue [None]
  - Insomnia [None]
  - Eyelid disorder [None]
  - Weight decreased [None]
  - Dizziness postural [None]
